FAERS Safety Report 8489580-7 (Version None)
Quarter: 2012Q3

REPORT INFORMATION
  Report Type: 
  Country: None (occurrence: None)
  Receive Date: 20120705
  Receipt Date: 20120702
  Transmission Date: 20120928
  Serious: No
  Sender: FDA-Public Use
  Company Number: US-B.I. PHARMACEUTICALS,INC./RIDGEFIELD-2012-BP-12925BP

PATIENT
  Age: 74 Year
  Sex: Female

DRUGS (6)
  1. METFORMIN HCL [Concomitant]
     Indication: DIABETES MELLITUS
  2. PRADAXA [Suspect]
     Indication: ATRIAL FIBRILLATION
     Dosage: 300 MG
     Route: 048
     Dates: start: 20110601
  3. VERAPAMIL [Concomitant]
     Indication: ATRIAL FIBRILLATION
  4. ROPINIROLE [Concomitant]
     Indication: RESTLESS LEGS SYNDROME
  5. DIOVAN HCT [Concomitant]
     Indication: HYPERTENSION
  6. JANUVIA [Concomitant]
     Indication: DIABETES MELLITUS

REACTIONS (1)
  - FOREIGN BODY [None]
